FAERS Safety Report 6317820 (Version 3)
Quarter: 2013Q3

REPORT INFORMATION
  Report Type: Report from Study
  Country: AU (occurrence: AU)
  Receive Date: 20070522
  Receipt Date: 20130716
  Transmission Date: 20140515
  Serious: Yes (Other)
  Sender: FDA-Public Use
  Company Number: AU-ELI_LILLY_AND_COMPANY-AU200705003228

PATIENT
  Age: 15 Year
  Sex: Female
  Weight: 46.9 kg

DRUGS (4)
  1. SOMATROPIN [Suspect]
     Indication: HYPOPITUITARISM
     Dosage: 1.76 MG, 6/W
     Route: 058
     Dates: start: 20060522, end: 20070502
  2. HYDROCORTISONE [Concomitant]
     Indication: HYPOPITUITARISM
     Dosage: 4 MG, 3/D
     Route: 048
     Dates: start: 20050314
  3. THYROXINE [Concomitant]
     Indication: HYPOPITUITARISM
     Dosage: 100 UG, DAILY (1/D)
     Route: 048
     Dates: start: 20050330
  4. DESMOPRESSIN /00361902/ [Concomitant]
     Indication: DIABETES INSIPIDUS
     Dosage: 10 UG, DAILY (1/D)
     Route: 048
     Dates: start: 20050314

REACTIONS (1)
  - Craniopharyngioma [Not Recovered/Not Resolved]
